FAERS Safety Report 9285623 (Version 2)
Quarter: 2013Q2

REPORT INFORMATION
  Report Type: Spontaneous
  Country: JP (occurrence: JP)
  Receive Date: 20130513
  Receipt Date: 20130617
  Transmission Date: 20140414
  Serious: No
  Sender: FDA-Public Use
  Company Number: JP-VERTEX PHARMACEUTICALS INC-2013-005882

PATIENT
  Age: 44 Year
  Sex: Female

DRUGS (8)
  1. TELAVIC [Suspect]
     Indication: CHRONIC HEPATITIS C
     Dosage: 1500 MG, QD
     Route: 048
     Dates: start: 20130412, end: 20130529
  2. PEGINTERFERON ALFA-2B [Suspect]
     Indication: CHRONIC HEPATITIS C
     Dosage: 1.5 ?G/KG, QW
     Route: 058
     Dates: start: 20130412, end: 20130529
  3. RIBAVIRIN [Concomitant]
     Dosage: 600 MG, QD
     Route: 048
     Dates: start: 20130412, end: 20130418
  4. RIBAVIRIN [Concomitant]
     Dosage: 400 MG, QD
     Route: 048
     Dates: start: 20130419, end: 20130508
  5. RIBAVIRIN [Concomitant]
     Dosage: 200 MG, QD
     Route: 048
     Dates: start: 20130509, end: 20130529
  6. NAUZELIN [Concomitant]
     Dosage: UNK, PRN
     Route: 048
     Dates: start: 20130420, end: 20130605
  7. CALONAL [Concomitant]
     Dosage: UNK, PRN
     Route: 048
     Dates: start: 20130420, end: 20130605
  8. GASMOTIN [Concomitant]
     Dosage: 30 DF, QD
     Route: 048
     Dates: start: 20130523

REACTIONS (3)
  - Papule [Recovered/Resolved]
  - Drug eruption [Recovered/Resolved]
  - Maternal exposure during pregnancy [Unknown]
